FAERS Safety Report 12271473 (Version 13)
Quarter: 2016Q3

REPORT INFORMATION
  Report Type: Report from Study
  Country: CA (occurrence: CA)
  Receive Date: 20160415
  Receipt Date: 20160823
  Transmission Date: 20161109
  Serious: Yes (Hospitalization)
  Sender: FDA-Public Use
  Company Number: CA-ACTELION-A-NJ2016-134375

PATIENT
  Age: 48 Year
  Sex: Female
  Weight: 55.78 kg

DRUGS (13)
  1. UPTRAVI [Concomitant]
     Active Substance: SELEXIPAG
     Dosage: 400 MCG, BID
     Route: 048
     Dates: start: 20160811
  2. RIOCIGUAT [Concomitant]
     Active Substance: RIOCIGUAT
     Dosage: 1.5 MG, TID
  3. FUROSEMIDE. [Concomitant]
     Active Substance: FUROSEMIDE
  4. ZOPLICONE [Concomitant]
     Active Substance: ZOPICLONE
  5. UPTRAVI [Concomitant]
     Active Substance: SELEXIPAG
     Indication: PULMONARY ARTERIAL HYPERTENSION
     Dosage: 200 MCG, BID
     Route: 048
     Dates: start: 20160808, end: 20160810
  6. OMEPRAZOLE. [Concomitant]
     Active Substance: OMEPRAZOLE
  7. CARIPUL [Suspect]
     Active Substance: EPOPROSTENOL
     Indication: PULMONARY ARTERIAL HYPERTENSION
     Dosage: UNK
     Route: 042
     Dates: start: 20151130
  8. ELAVIL [Concomitant]
     Active Substance: AMITRIPTYLINE HYDROCHLORIDE
  9. WARFARIN [Concomitant]
     Active Substance: WARFARIN
     Dosage: 10 MG, QD
  10. TRACLEER [Concomitant]
     Active Substance: BOSENTAN
     Indication: PULMONARY ARTERIAL HYPERTENSION
     Route: 048
  11. RIOCIGUAT [Concomitant]
     Active Substance: RIOCIGUAT
     Dosage: 2.0 MG, TID
  12. CITALOPRAM [Concomitant]
     Active Substance: CITALOPRAM HYDROBROMIDE
  13. SILDENAFIL. [Concomitant]
     Active Substance: SILDENAFIL

REACTIONS (42)
  - Bladder catheterisation [Unknown]
  - Blood pressure increased [Unknown]
  - Cataract [Not Recovered/Not Resolved]
  - Parosmia [Not Recovered/Not Resolved]
  - Tinnitus [Recovered/Resolved]
  - Cardiac infection [Unknown]
  - Pyrexia [Unknown]
  - Pruritus [Unknown]
  - Decreased appetite [Unknown]
  - Walking disability [Unknown]
  - Malaise [Unknown]
  - Heart rate increased [Unknown]
  - Dizziness [Recovered/Resolved]
  - Macular hole [Unknown]
  - Visual acuity reduced [Unknown]
  - Sputum retention [Unknown]
  - Pulmonary hypertension [Unknown]
  - Catheter site swelling [Unknown]
  - Depression [Unknown]
  - Device related infection [Unknown]
  - Dysphonia [Unknown]
  - Stress urinary incontinence [Unknown]
  - Cough [Recovered/Resolved]
  - Influenza like illness [Not Recovered/Not Resolved]
  - Gastrooesophageal reflux disease [Unknown]
  - Blood pressure decreased [Unknown]
  - Spinal operation [Unknown]
  - Intervertebral disc protrusion [Unknown]
  - Sensory disturbance [Unknown]
  - Quality of life decreased [Unknown]
  - Headache [Not Recovered/Not Resolved]
  - Exercise tolerance decreased [Unknown]
  - Weight decreased [Unknown]
  - Micturition disorder [Unknown]
  - Chest pain [Unknown]
  - Catheter site infection [Unknown]
  - Catheter site discharge [Unknown]
  - Asthenia [Unknown]
  - Multiple sclerosis relapse [Unknown]
  - Increased tendency to bruise [Unknown]
  - Fatigue [Unknown]
  - Rash [Unknown]

NARRATIVE: CASE EVENT DATE: 20160416
